FAERS Safety Report 19665981 (Version 2)
Quarter: 2021Q3

REPORT INFORMATION
  Report Type: Spontaneous
  Country: LV (occurrence: LV)
  Receive Date: 20210806
  Receipt Date: 20210902
  Transmission Date: 20211014
  Serious: Yes (Hospitalization, Other)
  Sender: FDA-Public Use
  Company Number: LV-TOPROL-2021000155

PATIENT
  Age: 66 Year
  Sex: Male
  Weight: 75 kg

DRUGS (5)
  1. METOPROLOL. [Concomitant]
     Active Substance: METOPROLOL
     Route: 048
  2. ESCADRA [Concomitant]
     Dosage: Q12H
     Route: 048
  3. VAXZEVRIA [Suspect]
     Active Substance: AZD-1222
     Dosage: THE 1ST IMMUNIZATION DOSE 0.5ML ONCE/SINGLE ADMINISTRATION AT 10:00:00.
     Route: 030
     Dates: start: 20210407, end: 20210407
  4. AMLODIPINE;ATORVASTATIN ;PERINDOPRIL [Concomitant]
     Active Substance: AMLODIPINE\ATORVASTATIN\PERINDOPRIL
     Dosage: 1 TABLET (20 MG/10 MG/5 MG) ONCE PER DAY
     Route: 048
  5. ADAPTOL [Concomitant]
     Active Substance: TEMGICOLURIL
     Dosage: Q12H
     Route: 048

REACTIONS (7)
  - Thrombocytopenia [Recovering/Resolving]
  - Immune thrombocytopenia [Recovering/Resolving]
  - Epistaxis [Recovering/Resolving]
  - Petechiae [Recovering/Resolving]
  - Conjunctival haemorrhage [Recovering/Resolving]
  - Haematoma [Recovering/Resolving]
  - Rash erythematous [Unknown]

NARRATIVE: CASE EVENT DATE: 20210419
